FAERS Safety Report 23710079 (Version 7)
Quarter: 2024Q2

REPORT INFORMATION
  Report Type: Report from Study
  Country: US (occurrence: US)
  Receive Date: 20240405
  Receipt Date: 20240523
  Transmission Date: 20240716
  Serious: Yes (Hospitalization, Other)
  Sender: FDA-Public Use
  Company Number: US-JNJFOC-20240161949

PATIENT
  Age: 6 Decade
  Sex: Male

DRUGS (9)
  1. MACITENTAN [Suspect]
     Active Substance: MACITENTAN
     Indication: Pulmonary arterial hypertension
     Route: 048
     Dates: start: 202309
  2. MACITENTAN [Suspect]
     Active Substance: MACITENTAN
     Route: 048
     Dates: start: 202310, end: 202401
  3. MACITENTAN [Suspect]
     Active Substance: MACITENTAN
     Dosage: STARTED OPSUMIT EITHER JAN2024 OR FEB2024 AND TOOK THE MEDICINE FOR 3 WEEKS (4 PILLS PER WEEK) BEFOR
     Route: 048
  4. SELEXIPAG [Suspect]
     Active Substance: SELEXIPAG
     Indication: Pulmonary arterial hypertension
     Route: 048
     Dates: start: 20240304
  5. SELEXIPAG [Suspect]
     Active Substance: SELEXIPAG
     Route: 048
     Dates: start: 202402
  6. SELEXIPAG [Suspect]
     Active Substance: SELEXIPAG
     Dosage: 600MCG IN THE AM AND 600MCG IN THE EVENING
     Route: 048
  7. SELEXIPAG [Suspect]
     Active Substance: SELEXIPAG
     Route: 048
     Dates: start: 20240406
  8. SELEXIPAG [Suspect]
     Active Substance: SELEXIPAG
     Route: 048
     Dates: start: 202402, end: 202404
  9. SELEXIPAG [Suspect]
     Active Substance: SELEXIPAG
     Route: 048
     Dates: start: 202402

REACTIONS (20)
  - Oxygen therapy [Not Recovered/Not Resolved]
  - Syncope [Recovered/Resolved]
  - Fluid retention [Recovering/Resolving]
  - Somnolence [Not Recovered/Not Resolved]
  - Blood creatinine increased [Recovering/Resolving]
  - Cardiac disorder [Unknown]
  - Respiration abnormal [Unknown]
  - Headache [Not Recovered/Not Resolved]
  - Abdominal discomfort [Recovering/Resolving]
  - Pain in jaw [Not Recovered/Not Resolved]
  - Diarrhoea [Not Recovered/Not Resolved]
  - Arthritis [Recovering/Resolving]
  - Weight decreased [Not Recovered/Not Resolved]
  - Decreased appetite [Not Recovered/Not Resolved]
  - Depression [Recovering/Resolving]
  - Muscle spasms [Unknown]
  - Illness [Unknown]
  - Drug ineffective [Unknown]
  - Vomiting [Unknown]
  - Off label use [Unknown]

NARRATIVE: CASE EVENT DATE: 20231001
